FAERS Safety Report 21798088 (Version 5)
Quarter: 2023Q1

REPORT INFORMATION
  Report Type: Spontaneous
  Country: AR (occurrence: AR)
  Receive Date: 20221230
  Receipt Date: 20230209
  Transmission Date: 20230417
  Serious: No
  Sender: FDA-Public Use
  Company Number: AR-PFIZER INC-PV202200129856

PATIENT
  Age: 11 Month
  Sex: Male

DRUGS (1)
  1. GENOTROPIN [Suspect]
     Active Substance: SOMATROPIN
     Indication: Prader-Willi syndrome
     Dosage: 0.1 TO 0.5MG 7 TIMES PER WEEK
     Dates: start: 20220914

REACTIONS (7)
  - Malaise [Not Recovered/Not Resolved]
  - Device malfunction [Not Recovered/Not Resolved]
  - Device breakage [Not Recovered/Not Resolved]
  - Drug dose omission by device [Not Recovered/Not Resolved]
  - Device leakage [Not Recovered/Not Resolved]
  - Device issue [Not Recovered/Not Resolved]
  - Device connection issue [Not Recovered/Not Resolved]
